FAERS Safety Report 19481705 (Version 1)
Quarter: 2021Q3

REPORT INFORMATION
  Report Type: Spontaneous
  Country: CN (occurrence: CN)
  Receive Date: 20210701
  Receipt Date: 20210701
  Transmission Date: 20211014
  Serious: Yes (Death)
  Sender: FDA-Public Use
  Company Number: CN-FRESENIUS KABI-FK202106696

PATIENT
  Age: 42 Year
  Sex: Male

DRUGS (8)
  1. VALPROATE [Suspect]
     Active Substance: VALPROIC ACID
     Indication: SEIZURE PROPHYLAXIS
     Route: 065
  2. LINEZOLID (MANUFACTURER UNKNOWN) [Suspect]
     Active Substance: LINEZOLID
     Indication: PROPHYLAXIS
     Route: 065
  3. METHYLPREDNISOLONE. [Concomitant]
     Active Substance: METHYLPREDNISOLONE
     Indication: OEDEMA
     Route: 065
  4. VANCOMYCIN (MANUFACTURER UNKNOWN) [Suspect]
     Active Substance: VANCOMYCIN
     Indication: PROPHYLAXIS
     Route: 065
  5. METHYLPREDNISOLONE. [Concomitant]
     Active Substance: METHYLPREDNISOLONE
     Route: 065
  6. VALPROATE [Suspect]
     Active Substance: VALPROIC ACID
     Route: 065
  7. CEFTRIAXONE. [Concomitant]
     Active Substance: CEFTRIAXONE
     Indication: PROPHYLAXIS
     Route: 065
  8. BIAPENEM [Suspect]
     Active Substance: BIAPENEM
     Indication: PROPHYLAXIS
     Route: 065

REACTIONS (2)
  - Thrombotic microangiopathy [Fatal]
  - Drug-induced liver injury [Fatal]
